FAERS Safety Report 7604413-6 (Version None)
Quarter: 2011Q3

REPORT INFORMATION
  Report Type: 
  Country: None (occurrence: None)
  Receive Date: 20110712
  Receipt Date: 20110705
  Transmission Date: 20111222
  Serious: Yes (Hospitalization)
  Sender: FDA-Public Use
  Company Number: PL-B.I. PHARMACEUTICALS,INC./RIDGEFIELD-2010-AP-00206AP

PATIENT
  Sex: Male
  Weight: 107 kg

DRUGS (4)
  1. PRADAXA [Suspect]
     Indication: THROMBOSIS PROPHYLAXIS
     Dosage: 110 MG
     Route: 048
     Dates: start: 20100413, end: 20100413
  2. ENARENAL [Concomitant]
     Indication: HYPERTENSION
     Dosage: 1X10MG
     Route: 048
     Dates: start: 20080101
  3. PRADAXA [Suspect]
     Dosage: 220 MG
     Route: 048
     Dates: start: 20100414, end: 20100414
  4. DIARIL [Concomitant]
     Indication: DIABETES MELLITUS
     Dosage: 1X2MG
     Route: 048
     Dates: start: 20080101

REACTIONS (4)
  - PAIN IN EXTREMITY [None]
  - OEDEMA PERIPHERAL [None]
  - DRUG INEFFECTIVE [None]
  - THROMBOPHLEBITIS SUPERFICIAL [None]
